FAERS Safety Report 24272326 (Version 1)
Quarter: 2024Q3

REPORT INFORMATION
  Report Type: Spontaneous
  Country: GB (occurrence: GB)
  Receive Date: 20240902
  Receipt Date: 20240902
  Transmission Date: 20241017
  Serious: Yes (Other)
  Sender: AMGEN
  Company Number: GB-PFIZER INC-PV202400112279

PATIENT
  Age: 70 Year
  Sex: Male

DRUGS (1)
  1. ENBREL [Suspect]
     Active Substance: BENZYL ALCOHOL\ETANERCEPT
     Indication: Rheumatoid arthritis
     Dosage: 50 MG, WEEKLY
     Route: 058

REACTIONS (6)
  - Hip arthroplasty [Unknown]
  - Ankle arthroplasty [Unknown]
  - Knee arthroplasty [Unknown]
  - Joint arthroplasty [Unknown]
  - Tooth infection [Unknown]
  - Infection [Unknown]
